FAERS Safety Report 17544511 (Version 1)
Quarter: 2020Q1

REPORT INFORMATION
  Report Type: Spontaneous
  Country: JP (occurrence: JP)
  Receive Date: 20200316
  Receipt Date: 20200316
  Transmission Date: 20200409
  Serious: Yes (Other)
  Sender: FDA-Public Use
  Company Number: NVSC2020JP073052

PATIENT
  Age: 36 Year
  Sex: Male
  Weight: 63.3 kg

DRUGS (1)
  1. METHYLPREDNISOLONE. [Suspect]
     Active Substance: METHYLPREDNISOLONE
     Indication: URTICARIAL VASCULITIS
     Dosage: 1000 MG, TID
     Route: 042

REACTIONS (2)
  - Product use in unapproved indication [Unknown]
  - Pneumonia bacterial [Unknown]
